FAERS Safety Report 13777409 (Version 1)
Quarter: 2017Q3

REPORT INFORMATION
  Report Type: Report from Study
  Country: US (occurrence: US)
  Receive Date: 20170721
  Receipt Date: 20170721
  Transmission Date: 20171127
  Serious: Yes (Hospitalization)
  Sender: FDA-Public Use
  Company Number: US-ROCHE-1966259

PATIENT
  Sex: Female

DRUGS (1)
  1. ESBRIET [Suspect]
     Active Substance: PIRFENIDONE
     Indication: PULMONARY FIBROSIS
     Route: 065
     Dates: start: 2015, end: 201506

REACTIONS (5)
  - Confusional state [Not Recovered/Not Resolved]
  - Pneumonia [Unknown]
  - Weight decreased [Unknown]
  - Rales [Not Recovered/Not Resolved]
  - Condition aggravated [Not Recovered/Not Resolved]
